FAERS Safety Report 6759871-6 (Version None)
Quarter: 2010Q2

REPORT INFORMATION
  Report Type: 
  Country: None (occurrence: None)
  Receive Date: 20100604
  Receipt Date: 20100524
  Transmission Date: 20101027
  Serious: Yes (Disabling)
  Sender: FDA-Public Use
  Company Number: 7005960

PATIENT
  Age: 40 Year
  Sex: Male

DRUGS (2)
  1. REBIF [Suspect]
     Indication: MULTIPLE SCLEROSIS
     Dosage: 22 MCG, 3 IN 1 WK, SUBCUTANEOUS
     Route: 058
     Dates: start: 20090313
  2. TETRAHYDROCANNABNIOL (TETRAHYDROCANNABINOL) [Concomitant]

REACTIONS (2)
  - ACCIDENT AT WORK [None]
  - LIMB TRAUMATIC AMPUTATION [None]
